FAERS Safety Report 5062683-5 (Version None)
Quarter: 2006Q3

REPORT INFORMATION
  Report Type: 
  Country: None (occurrence: None)
  Receive Date: 20060703
  Receipt Date: 20060703
  Transmission Date: 20061208
  Serious: No
  Sender: FDA-Public Use
  Company Number: 2005S1010689

PATIENT
  Age: 50 Year
  Sex: Female

DRUGS (10)
  1. CLOZAPINE [Suspect]
     Indication: SCHIZOPHRENIA
     Dosage: 150 MG; BID; PO
     Route: 048
     Dates: start: 20050323
  2. ACETAMINOPHEN [Concomitant]
  3. BENZTROPINE MESYLATE [Concomitant]
  4. VALPROATE SODIUM [Concomitant]
  5. IBUPROFEN [Concomitant]
  6. HALOPERIDOL [Concomitant]
  7. LORAZEPAM [Concomitant]
  8. INSULIN [Concomitant]
  9. VITAMINS NOS [Concomitant]
  10. ETHINYLESTRADIOL/NORETHISTERONE [Concomitant]

REACTIONS (1)
  - GRANULOCYTOPENIA [None]
